FAERS Safety Report 5593183-1 (Version None)
Quarter: 2008Q1

REPORT INFORMATION
  Report Type: 
  Country: None (occurrence: None)
  Receive Date: 20080114
  Receipt Date: 20071231
  Transmission Date: 20080703
  Serious: Yes (Life-Threatening, Disabling)
  Sender: FDA-Public Use
  Company Number: 2008AL000072

PATIENT
  Sex: Female
  Weight: 63 kg

DRUGS (2)
  1. MIRTAZAPINE [Suspect]
     Indication: DEPRESSION
     Dosage: 15 MG; PO
     Route: 048
     Dates: start: 20070711, end: 20071031
  2. MICROGYNON [Concomitant]

REACTIONS (1)
  - DEEP VEIN THROMBOSIS [None]
